FAERS Safety Report 4588532-7 (Version None)
Quarter: 2005Q1

REPORT INFORMATION
  Report Type: 
  Country: None (occurrence: None)
  Receive Date: 20050222
  Receipt Date: 20050215
  Transmission Date: 20050727
  Serious: Yes (Other)
  Sender: FDA-Public Use
  Company Number: 200511201US

PATIENT
  Sex: Female

DRUGS (8)
  1. LANTUS [Suspect]
     Indication: DIABETES MELLITUS NON-INSULIN-DEPENDENT
     Dosage: DOSE UNIT: UNITS
     Dates: start: 20041101, end: 20041101
  2. ACTOS [Suspect]
     Indication: DIABETES MELLITUS NON-INSULIN-DEPENDENT
     Route: 048
     Dates: start: 20041018, end: 20041101
  3. ZIAC [Concomitant]
  4. MECLIZINE [Concomitant]
  5. PLAVIX [Concomitant]
  6. KLOR-CON [Concomitant]
  7. SSRI [Concomitant]
     Indication: HOT FLUSH
     Dosage: DOSE: NOT PROVIDED
  8. SSRI [Concomitant]
     Indication: MOOD SWINGS
     Dosage: DOSE: NOT PROVIDED

REACTIONS (8)
  - BLOOD GLUCOSE DECREASED [None]
  - BLOOD GLUCOSE INCREASED [None]
  - DISEASE RECURRENCE [None]
  - HOT FLUSH [None]
  - MENOPAUSE [None]
  - MOOD SWINGS [None]
  - STRESS [None]
  - WEIGHT INCREASED [None]
